FAERS Safety Report 15897433 (Version 1)
Quarter: 2019Q1

REPORT INFORMATION
  Report Type: Spontaneous
  Country: US (occurrence: US)
  Receive Date: 20190131
  Receipt Date: 20190131
  Transmission Date: 20190417
  Serious: No
  Sender: FDA-Public Use
  Company Number: PHEH2019US003860

PATIENT
  Age: 70 Year
  Sex: Male

DRUGS (1)
  1. TASIGNA [Suspect]
     Active Substance: NILOTINIB
     Indication: DRUG INTOLERANCE
     Dosage: 200 MG, QD
     Route: 048
     Dates: start: 20181201, end: 20190101

REACTIONS (3)
  - Pruritus [Unknown]
  - Blood glucose increased [Unknown]
  - Product use in unapproved indication [Unknown]

NARRATIVE: CASE EVENT DATE: 20181201
